FAERS Safety Report 24562318 (Version 3)
Quarter: 2025Q2

REPORT INFORMATION
  Report Type: Report from Study
  Country: US (occurrence: US)
  Receive Date: 20241029
  Receipt Date: 20250401
  Transmission Date: 20250717
  Serious: Yes (Other)
  Sender: MYLAN
  Company Number: US-MYLANLABS-2024M1097473

PATIENT
  Age: 63 Year
  Sex: Female
  Weight: 76.65 kg

DRUGS (1)
  1. GLATIRAMER ACETATE [Suspect]
     Active Substance: GLATIRAMER ACETATE
     Indication: Multiple sclerosis
     Dosage: 40 MILLIGRAM, 3XW (THREE TIMES A WEEK)

REACTIONS (14)
  - Lymphoma [Unknown]
  - Neurogenic bladder [Unknown]
  - Progressive multifocal leukoencephalopathy [Unknown]
  - Musculoskeletal disorder [Unknown]
  - Memory impairment [Unknown]
  - Neck mass [Unknown]
  - Feeling hot [Unknown]
  - Fatigue [Unknown]
  - Visual impairment [Unknown]
  - Migraine [Unknown]
  - Injection site mass [Not Recovered/Not Resolved]
  - Injection site pain [Unknown]
  - Injection site erythema [Recovered/Resolved]
  - Injection site bruising [Unknown]

NARRATIVE: CASE EVENT DATE: 20241001
